FAERS Safety Report 8954891 (Version 1)
Quarter: 2012Q4

REPORT INFORMATION
  Report Type: Report from Study
  Country: CM (occurrence: CM)
  Receive Date: 20121207
  Receipt Date: 20121207
  Transmission Date: 20130627
  Serious: Yes (Other)
  Sender: FDA-Public Use
  Company Number: CM-ABBOTT-12P-027-1015779-00

PATIENT
  Age: 31 Year
  Sex: Female

DRUGS (3)
  1. RITONAVIR [Suspect]
     Indication: HIV INFECTION
     Route: 048
     Dates: start: 20120910
  2. TRUVADA [Concomitant]
     Indication: HIV INFECTION
     Dosage: 1 tab
     Route: 048
     Dates: start: 20120910
  3. PREZISTA [Concomitant]
     Indication: HIV INFECTION
     Route: 048
     Dates: start: 20120910

REACTIONS (1)
  - Abortion induced [Unknown]
